FAERS Safety Report 18197918 (Version 2)
Quarter: 2022Q1

REPORT INFORMATION
  Report Type: Report from Study
  Country: CA (occurrence: CA)
  Receive Date: 20200826
  Receipt Date: 20220131
  Transmission Date: 20220423
  Serious: Yes (Other)
  Sender: FDA-Public Use
  Company Number: CA-NOVARTISPH-PHHY2017CA100666

PATIENT
  Age: 65 Year
  Sex: Male
  Weight: 70 kg

DRUGS (11)
  1. JADENU [Suspect]
     Active Substance: DEFERASIROX
     Indication: Iron overload
     Dosage: 900 MG, QD
     Route: 048
     Dates: start: 20170527
  2. JADENU [Suspect]
     Active Substance: DEFERASIROX
     Indication: Anaemia
     Dosage: 900 MG, QD
     Route: 048
     Dates: start: 20170527
  3. JADENU [Suspect]
     Active Substance: DEFERASIROX
     Dosage: 1080 MG, QD (STRENGTH 360 MG)
     Route: 048
     Dates: start: 20170527
  4. JADENU [Suspect]
     Active Substance: DEFERASIROX
     Dosage: 720 MG, QD
     Route: 048
  5. JADENU [Suspect]
     Active Substance: DEFERASIROX
     Dosage: 900 MG, QD
     Route: 048
     Dates: start: 201808
  6. JADENU [Suspect]
     Active Substance: DEFERASIROX
     Dosage: 1260 MG, QD (STRENGTH: 360 MG, 180 MG)
     Route: 048
  7. JADENU [Suspect]
     Active Substance: DEFERASIROX
     Dosage: 1080 MG, QD
     Route: 048
  8. JADENU [Suspect]
     Active Substance: DEFERASIROX
     Dosage: 360 MG, QD
     Route: 048
  9. AMLODIPINE [Suspect]
     Active Substance: AMLODIPINE BESYLATE
     Indication: Product used for unknown indication
     Dosage: UNK
     Route: 048
  10. TYLENOL [Concomitant]
     Active Substance: ACETAMINOPHEN
     Indication: Product used for unknown indication
     Dosage: UNK UNK, PRN
     Route: 065
  11. VITAMIN B2 [Concomitant]
     Active Substance: RIBOFLAVIN
     Indication: Product used for unknown indication
     Dosage: UNK UNK, QD
     Route: 065

REACTIONS (10)
  - Red blood cell count decreased [Unknown]
  - Haemoglobin decreased [Recovering/Resolving]
  - Drug hypersensitivity [Unknown]
  - Hypoaesthesia [Not Recovered/Not Resolved]
  - Paraesthesia [Recovered/Resolved]
  - Diarrhoea [Not Recovered/Not Resolved]
  - Dyspepsia [Unknown]
  - Vomiting [Unknown]
  - Abdominal pain upper [Unknown]
  - Therapeutic product effect incomplete [Unknown]

NARRATIVE: CASE EVENT DATE: 20170501
